FAERS Safety Report 5093638-2 (Version None)
Quarter: 2006Q3

REPORT INFORMATION
  Report Type: 
  Country: None (occurrence: None)
  Receive Date: 20060829
  Receipt Date: 20060814
  Transmission Date: 20061208
  Serious: Yes (Other)
  Sender: FDA-Public Use
  Company Number: 2006S1006521

PATIENT
  Age: 77 Year
  Sex: Female

DRUGS (17)
  1. FENTANYL TRANSDERMAL SYSTEM [Suspect]
     Indication: SURGERY
     Dosage: 100 UG/HR;Q3D;TDER
     Route: 062
     Dates: start: 20060616, end: 20060709
  2. ACETYLSALICYLIC ACID [Concomitant]
  3. BISACODYL [Concomitant]
  4. CALCIUM W/MAGNESIUM [Concomitant]
  5. DOCUSATE SODIUM [Concomitant]
  6. DIFLUNISAL [Concomitant]
  7. ESTRATONE [Concomitant]
  8. ALENDRONATE SODIUM [Concomitant]
  9. ESCITALOPRAM [Concomitant]
  10. VITAMINS [Concomitant]
  11. OXYBUTYNIN [Concomitant]
  12. OMEPRAZOLE [Concomitant]
  13. QUININE SULFATE [Concomitant]
  14. LEVOTHYROXINE SODIUM [Concomitant]
  15. VITAMIN E [Concomitant]
  16. ALPRAZOLAM [Concomitant]
  17. SIMVASTATIN [Concomitant]

REACTIONS (4)
  - DRUG WITHDRAWAL SYNDROME [None]
  - INCORRECT DOSE ADMINISTERED [None]
  - PHARMACEUTICAL PRODUCT COMPLAINT [None]
  - POOR QUALITY DRUG ADMINISTERED [None]
